FAERS Safety Report 15575770 (Version 1)
Quarter: 2018Q4

REPORT INFORMATION
  Report Type: Spontaneous
  Country: US (occurrence: US)
  Receive Date: 20181101
  Receipt Date: 20181101
  Transmission Date: 20190205
  Serious: No
  Sender: FDA-Public Use
  Company Number: US-MIST-TIR-2018-0264

PATIENT
  Age: 45 Year
  Sex: Female
  Weight: 61.29 kg

DRUGS (3)
  1. TIROSINT [Suspect]
     Active Substance: LEVOTHYROXINE SODIUM
     Indication: AUTOIMMUNE THYROIDITIS
     Dosage: 75MCG DAILY
     Route: 048
     Dates: start: 201303
  2. TIROSINT [Suspect]
     Active Substance: LEVOTHYROXINE SODIUM
     Dosage: 75MCG DAILY
     Route: 048
  3. ZYRTEC [Concomitant]
     Active Substance: CETIRIZINE HYDROCHLORIDE
     Indication: PRODUCT USED FOR UNKNOWN INDICATION

REACTIONS (8)
  - Fatigue [Unknown]
  - Constipation [Unknown]
  - Product storage error [Unknown]
  - Palpitations [Unknown]
  - Pain [Unknown]
  - Depression [Unknown]
  - Arthralgia [Unknown]
  - Menstruation delayed [Unknown]

NARRATIVE: CASE EVENT DATE: 201802
